FAERS Safety Report 21512373 (Version 1)
Quarter: 2022Q4

REPORT INFORMATION
  Report Type: Spontaneous
  Country: US (occurrence: US)
  Receive Date: 20221027
  Receipt Date: 20221027
  Transmission Date: 20230113
  Serious: No
  Sender: FDA-Public Use
  Company Number: US-MAYNE PHARMA-2022MYN001270

PATIENT
  Age: 21 Year
  Sex: Female

DRUGS (1)
  1. NEXTSTELLIS [Suspect]
     Active Substance: DROSPIRENONE\ESTETROL MONOHYDRATE
     Indication: Contraception
     Dosage: 3-14.2 MG, QD (TAKE 1 TABLET BY MOUTH EVERYDAY)
     Route: 065
     Dates: start: 20220602, end: 20220914

REACTIONS (1)
  - Urticaria [Unknown]
